FAERS Safety Report 9371483 (Version 4)
Quarter: 2014Q2

REPORT INFORMATION
  Report Type: Spontaneous
  Country: FR (occurrence: FR)
  Receive Date: 20130627
  Receipt Date: 20140527
  Transmission Date: 20141212
  Serious: Yes (Hospitalization)
  Sender: FDA-Public Use
  Company Number: FR-UCBSA-089554

PATIENT
  Age: 10 Year
  Sex: Male
  Weight: 29 kg

DRUGS (14)
  1. KEPPRA [Suspect]
     Indication: PARTIAL SEIZURES
     Route: 042
     Dates: start: 20130420, end: 20130505
  2. KEPPRA [Suspect]
     Indication: PARTIAL SEIZURES
     Route: 042
     Dates: start: 20130506
  3. FLAGYL [Suspect]
     Indication: EMPYEMA
     Route: 042
     Dates: start: 20130418, end: 201305
  4. FLAGYL [Suspect]
     Indication: EMPYEMA
     Route: 042
     Dates: start: 201305, end: 20130511
  5. CEFOTAXIME PANPHARMA [Suspect]
     Indication: MENINGITIS BACTERIAL
     Route: 042
     Dates: start: 20130414
  6. NALBUPHINE [Suspect]
     Indication: ANALGESIC THERAPY
     Route: 042
     Dates: start: 20130504, end: 20130511
  7. ZOPHREN [Suspect]
     Indication: VOMITING
     Dosage: DAILY DOSE: 4MG
     Route: 042
     Dates: start: 20130504, end: 20130511
  8. DOLIPRANE [Suspect]
     Indication: ANALGESIC THERAPY
     Route: 048
     Dates: start: 2013, end: 20130511
  9. DOLIPRANE [Suspect]
     Indication: ANALGESIC THERAPY
     Route: 042
     Dates: start: 2013, end: 2013
  10. DEXAMETHASONE [Concomitant]
     Dates: start: 20130414, end: 20130427
  11. DEXAMETHASONE [Concomitant]
     Dates: start: 20130428, end: 20130429
  12. DEXAMETHASONE [Concomitant]
     Dates: start: 20130503, end: 20130504
  13. VANCOMYCINE [Concomitant]
     Dates: start: 20130414, end: 20130422
  14. PERFALGAN [Concomitant]

REACTIONS (1)
  - Neutropenia [Recovered/Resolved]
